FAERS Safety Report 5767680-X (Version None)
Quarter: 2008Q2

REPORT INFORMATION
  Report Type: 
  Country: None (occurrence: None)
  Receive Date: 20080612
  Receipt Date: 20080606
  Transmission Date: 20081010
  Serious: Yes (Hospitalization)
  Sender: FDA-Public Use
  Company Number: PFIZER INC-2003115337

PATIENT
  Age: 66 Year
  Sex: Male

DRUGS (7)
  1. ATARAX [Suspect]
     Indication: ACUTE CORONARY SYNDROME
     Route: 048
     Dates: start: 20030602, end: 20030603
  2. HEPARIN SODIUM [Suspect]
     Indication: ACUTE CORONARY SYNDROME
     Route: 042
     Dates: start: 20030602, end: 20030604
  3. ISOSORBIDE DINITRATE [Suspect]
     Indication: ACUTE CORONARY SYNDROME
     Dates: start: 20030602, end: 20030603
  4. SOLDACTONE [Suspect]
     Indication: ACUTE CORONARY SYNDROME
     Route: 042
     Dates: start: 20030602, end: 20030602
  5. ATENOLOL [Suspect]
     Indication: ACUTE CORONARY SYNDROME
     Dates: start: 20030602, end: 20030603
  6. INTEGRILIN [Suspect]
     Indication: ACUTE CORONARY SYNDROME
     Route: 042
     Dates: start: 20030602, end: 20030603
  7. CONTRAST MEDIA [Concomitant]
     Indication: ANGIOPLASTY
     Route: 051
     Dates: start: 20030602, end: 20030603

REACTIONS (1)
  - RASH PUSTULAR [None]
